FAERS Safety Report 4567951-9 (Version None)
Quarter: 2005Q1

REPORT INFORMATION
  Report Type: 
  Country: None (occurrence: None)
  Receive Date: 20050202
  Receipt Date: 20041104
  Transmission Date: 20050727
  Serious: No
  Sender: FDA-Public Use
  Company Number: US-GLAXOSMITHKLINE-A0532723A

PATIENT
  Age: 76 Year
  Sex: Female

DRUGS (2)
  1. NAVELBINE [Suspect]
     Route: 042
     Dates: end: 20041104
  2. NO CONCURRENT MEDICATION [Concomitant]

REACTIONS (1)
  - ABDOMINAL PAIN [None]
